FAERS Safety Report 6187417-2 (Version None)
Quarter: 2009Q2

REPORT INFORMATION
  Report Type: 
  Country: None (occurrence: None)
  Receive Date: 20090512
  Receipt Date: 20090427
  Transmission Date: 20091009
  Serious: Yes (Hospitalization, Other)
  Sender: FDA-Public Use
  Company Number: FR-BIOGENIDEC-2009BI001547

PATIENT
  Age: 37 Year
  Sex: Female
  Weight: 75 kg

DRUGS (8)
  1. NATALIZUMAB [Suspect]
     Indication: MULTIPLE SCLEROSIS
     Route: 042
     Dates: start: 20061027
  2. ALFUZOSINE [Concomitant]
     Dates: start: 20070824, end: 20081001
  3. NIFLUMIC ACID [Concomitant]
     Dates: start: 20081215, end: 20081219
  4. CEFPODOXIME PROXETIL [Concomitant]
     Dates: start: 20081215, end: 20081220
  5. PREDNISOLONE [Concomitant]
     Dates: start: 20081215, end: 20081220
  6. CITALOPRAM HYDROBROMIDE [Concomitant]
     Dates: start: 20080601, end: 20081001
  7. SEGLOR [Concomitant]
     Dates: start: 20080601, end: 20081001
  8. SOLU-MEDROL? [Concomitant]

REACTIONS (1)
  - MANIA [None]
